FAERS Safety Report 23762413 (Version 1)
Quarter: 2024Q2

REPORT INFORMATION
  Report Type: Spontaneous
  Country: US (occurrence: None)
  Receive Date: 20240418
  Receipt Date: 20240418
  Transmission Date: 20240716
  Serious: Yes (Life-Threatening, Hospitalization, Other)
  Sender: FDA-Public Use
  Company Number: None

PATIENT
  Age: 68 Year
  Sex: Female
  Weight: 61.9 kg

DRUGS (18)
  1. SODIUM CHLORIDE [Suspect]
     Active Substance: SODIUM CHLORIDE
     Indication: Chronic obstructive pulmonary disease
     Dosage: 4 ML TWICE A DAY RESPIRATORY (INHALATION)
     Route: 055
     Dates: start: 20240326, end: 20240326
  2. SODIUM CHLORIDE [Suspect]
     Active Substance: SODIUM CHLORIDE
     Indication: Pneumonia
  3. SODIUM CHLORIDE [Suspect]
     Active Substance: SODIUM CHLORIDE
     Indication: Asthma
  4. thiamine 100 mg tablet [Concomitant]
     Dates: start: 20240324, end: 20240328
  5. prednisone 40 mg tablet [Concomitant]
     Dates: start: 20240325, end: 20240326
  6. Phillips colon health capsule [Concomitant]
     Dates: start: 20240324, end: 20240328
  7. OXYCODONE HYDROCHLORIDE [Concomitant]
     Active Substance: OXYCODONE HYDROCHLORIDE
     Dates: start: 20240324, end: 20240328
  8. ipratropium-albuterol (DUONEB) 0.5-2.5 mg/3mL nebulizer solution [Concomitant]
     Dates: start: 20240323, end: 20240328
  9. subQ heparin 5000 units [Concomitant]
     Dates: start: 20240323, end: 20240328
  10. FUROSEMIDE [Concomitant]
     Active Substance: FUROSEMIDE
     Dates: start: 20240325, end: 20240328
  11. FOLIC ACID [Concomitant]
     Active Substance: FOLIC ACID
     Dates: start: 20240324, end: 20240328
  12. Fluticasone-Umeclidin-Vilant (TRELEGY ELLIPTA) 100-62.5-25 MCG/ACT inh [Concomitant]
     Dates: start: 20240324, end: 20240328
  13. fluoxetine 40 mg capsule [Concomitant]
     Dates: start: 20240324, end: 20240328
  14. ferrous sulfate 325 mg tablet [Concomitant]
     Dates: start: 20240324, end: 20240328
  15. ceftriaxone 2g injection [Concomitant]
     Dates: start: 20240324, end: 20240328
  16. aspirin 81 mg chewable tablet [Concomitant]
     Dates: start: 20240324, end: 20240328
  17. ACETAMINOPHEN [Concomitant]
     Active Substance: ACETAMINOPHEN
     Dates: start: 20240324, end: 20240328
  18. AZITHROMYCIN ANHYDROUS [Concomitant]
     Active Substance: AZITHROMYCIN ANHYDROUS
     Dates: start: 20240324, end: 20240327

REACTIONS (6)
  - Acute respiratory failure [None]
  - Hypoxia [None]
  - Hypercapnia [None]
  - Oxygen saturation decreased [None]
  - Heart rate increased [None]
  - Therapy cessation [None]

NARRATIVE: CASE EVENT DATE: 20240326
